FAERS Safety Report 8475727-5 (Version None)
Quarter: 2012Q2

REPORT INFORMATION
  Report Type: 
  Country: None (occurrence: None)
  Receive Date: 20120628
  Receipt Date: 20120618
  Transmission Date: 20120825
  Serious: Yes (Other)
  Sender: FDA-Public Use
  Company Number: JP-GLAXOSMITHKLINE-B0809926A

PATIENT
  Sex: Male
  Weight: 53 kg

DRUGS (9)
  1. GLUFAST [Concomitant]
     Dosage: 15MG PER DAY
     Route: 048
  2. ISOSORBIDE DINITRATE [Concomitant]
     Dosage: 40MG PER DAY
     Route: 061
  3. NICORANDIL [Concomitant]
     Dosage: 15MG PER DAY
     Route: 048
  4. ENALAPRIL MALEATE [Concomitant]
     Dosage: 2.5MG PER DAY
     Route: 048
  5. AVISHOT [Concomitant]
     Indication: BENIGN PROSTATIC HYPERPLASIA
     Dosage: 25MG PER DAY
     Route: 048
  6. VOGLIBOSE [Concomitant]
     Dosage: .9MG PER DAY
     Route: 048
  7. ASPIRIN [Concomitant]
     Dosage: 100MG PER DAY
     Route: 048
  8. CARVEDILOL [Concomitant]
     Dosage: 2.5MG PER DAY
     Route: 048
  9. DUTASTERIDE [Suspect]
     Indication: BENIGN PROSTATIC HYPERPLASIA
     Dosage: 5MG PER DAY
     Route: 048
     Dates: start: 20110608

REACTIONS (1)
  - ANAEMIA [None]
